FAERS Safety Report 8616370-4 (Version None)
Quarter: 2012Q3

REPORT INFORMATION
  Report Type: 
  Country: None (occurrence: None)
  Receive Date: 20120823
  Receipt Date: 20120814
  Transmission Date: 20120928
  Serious: Yes (Other)
  Sender: FDA-Public Use
  Company Number: US-ABBOTT-12P-163-0969278-00

PATIENT
  Sex: Female

DRUGS (4)
  1. GARDASIL [Suspect]
     Indication: IMMUNISATION
     Dates: start: 20120813
  2. HUMIRA [Suspect]
     Indication: RHEUMATOID ARTHRITIS
     Dates: start: 20120501
  3. HUMIRA [Suspect]
     Dates: start: 20120701, end: 20120813
  4. HUMIRA [Suspect]

REACTIONS (12)
  - UPPER RESPIRATORY TRACT INFECTION [None]
  - HYPERAESTHESIA [None]
  - PERIPHERAL COLDNESS [None]
  - JOINT STIFFNESS [None]
  - CYSTITIS [None]
  - PAIN OF SKIN [None]
  - DRUG EFFECT DELAYED [None]
  - MUSCULOSKELETAL STIFFNESS [None]
  - PAPILLOMA VIRAL INFECTION [None]
  - MYALGIA [None]
  - KIDNEY INFECTION [None]
  - FEELING ABNORMAL [None]
